FAERS Safety Report 10522863 (Version 1)
Quarter: 2014Q4

REPORT INFORMATION
  Report Type: Spontaneous
  Country: US (occurrence: None)
  Receive Date: 20141010
  Receipt Date: 20141010
  Transmission Date: 20150528
  Serious: Yes (Other)
  Sender: FDA-Public Use
  Company Number: ADR-2014-01858

PATIENT
  Age: 15 Year
  Sex: Female

DRUGS (15)
  1. PREGABALIN. [Suspect]
     Active Substance: PREGABALIN
  2. OXYCODONE [Suspect]
     Active Substance: OXYCODONE
  3. BACLOFEN. [Suspect]
     Active Substance: BACLOFEN
     Indication: PAIN
  4. MEDROXYPROGESTERONE [Suspect]
     Active Substance: MEDROXYPROGESTERONE
  5. ONDANSETRON [Suspect]
     Active Substance: ONDANSETRON
  6. TAPENTADOL [Suspect]
     Active Substance: TAPENTADOL
  7. PANTOPRAZOLE [Suspect]
     Active Substance: PANTOPRAZOLE SODIUM
  8. TRAZODONE [Suspect]
     Active Substance: TRAZODONE HYDROCHLORIDE
  9. CEPHALEXIN. [Suspect]
     Active Substance: CEPHALEXIN
  10. ZOLPIDEM [Suspect]
     Active Substance: ZOLPIDEM\ZOLPIDEM TARTRATE
  11. TOPIRAMATE. [Suspect]
     Active Substance: TOPIRAMATE
  12. FENTANYL TRANSDERMAL SYSTEM [Suspect]
     Active Substance: FENTANYL
     Dosage: 500 MCG/HR EVERY 3 DAYS
  13. TEMAZEPAM. [Suspect]
     Active Substance: TEMAZEPAM
  14. CYANOCOBALAMIN. [Suspect]
     Active Substance: CYANOCOBALAMIN
     Dosage: 1000 MCG/ML, EVERY TWO WEEKS
  15. DULOXETINE [Suspect]
     Active Substance: DULOXETINE

REACTIONS (30)
  - Pain [None]
  - Dysphoria [None]
  - Dysarthria [None]
  - Erythromelalgia [None]
  - Abnormal behaviour [None]
  - Swelling [None]
  - Complex regional pain syndrome [None]
  - Drug ineffective [None]
  - Somnolence [None]
  - Allodynia [None]
  - Depression [None]
  - Suicidal ideation [None]
  - Tachycardia [None]
  - Tangentiality [None]
  - Erythema [None]
  - Pain in extremity [None]
  - Raynaud^s phenomenon [None]
  - Weight increased [None]
  - Dysuria [None]
  - Quality of life decreased [None]
  - Flat affect [None]
  - Emotional distress [None]
  - Anxiety [None]
  - Mental status changes [None]
  - Skin discolouration [None]
  - Fatigue [None]
  - Antisocial behaviour [None]
  - Gastrointestinal disorder [None]
  - Walking aid user [None]
  - Slow speech [None]

NARRATIVE: CASE EVENT DATE: 20140701
